FAERS Safety Report 8380897-3 (Version None)
Quarter: 2012Q2

REPORT INFORMATION
  Report Type: 
  Country: None (occurrence: None)
  Receive Date: 20120523
  Receipt Date: 20120515
  Transmission Date: 20120825
  Serious: Yes (Hospitalization, Disabling, Other)
  Sender: FDA-Public Use
  Company Number: US-MERCK-1203USA03309

PATIENT
  Age: 66 Year
  Sex: Female

DRUGS (7)
  1. FOSAMAX [Suspect]
     Indication: OSTEOPOROSIS
     Route: 048
     Dates: start: 19960701, end: 19970501
  2. FOSAMAX [Suspect]
     Route: 048
     Dates: start: 19971201, end: 20011120
  3. FOSAMAX [Suspect]
     Route: 048
     Dates: start: 20090122, end: 20110701
  4. FOSAMAX PLUS D [Suspect]
     Indication: OSTEOPENIA
     Route: 048
     Dates: start: 20011120, end: 20090122
  5. FOSAMAX [Suspect]
     Route: 048
     Dates: start: 19971201, end: 20011120
  6. FOSAMAX PLUS D [Suspect]
     Indication: OSTEOPOROSIS
     Route: 048
     Dates: start: 20011120, end: 20090122
  7. FOSAMAX [Suspect]
     Indication: OSTEOPENIA
     Route: 048
     Dates: start: 19960701, end: 19970501

REACTIONS (15)
  - PNEUMONIA [None]
  - JOINT EFFUSION [None]
  - HORMONE LEVEL ABNORMAL [None]
  - FEMUR FRACTURE [None]
  - ARTHRALGIA [None]
  - CARDIAC DISORDER [None]
  - BONE DENSITY DECREASED [None]
  - STRESS FRACTURE [None]
  - PERINEURIAL CYST [None]
  - HYPERTENSION [None]
  - TOOTH DISORDER [None]
  - BACK PAIN [None]
  - OSTEOARTHRITIS [None]
  - ARTHRITIS [None]
  - OSTEOPOROSIS [None]
